FAERS Safety Report 24660185 (Version 1)
Quarter: 2024Q4

REPORT INFORMATION
  Report Type: Spontaneous
  Country: US (occurrence: None)
  Receive Date: 20241124
  Receipt Date: 20241124
  Transmission Date: 20250115
  Serious: Yes (unspecified)
  Sender: Public
  Company Number: None

PATIENT
  Age: 26 Year
  Sex: Female
  Weight: 143.55 kg

DRUGS (4)
  1. DULOXETINE HYDROCHLORIDE [Suspect]
     Active Substance: DULOXETINE HYDROCHLORIDE
     Indication: Panic disorder
     Dosage: FREQUENCY : DAILY;?
     Route: 048
  2. DULOXETINE [Concomitant]
     Active Substance: DULOXETINE
  3. METOPROLOL [Concomitant]
     Active Substance: METOPROLOL
  4. METFORMIN [Concomitant]
     Active Substance: METFORMIN HYDROCHLORIDE

REACTIONS (14)
  - Electric shock sensation [None]
  - Therapy cessation [None]
  - Nausea [None]
  - Emotional distress [None]
  - Vomiting [None]
  - Diarrhoea [None]
  - Fatigue [None]
  - Feelings of worthlessness [None]
  - Derealisation [None]
  - Loss of employment [None]
  - Loss of personal independence in daily activities [None]
  - Vomiting projectile [None]
  - Tremor [None]
  - Blood pressure increased [None]

NARRATIVE: CASE EVENT DATE: 20241123
